FAERS Safety Report 21425631 (Version 4)
Quarter: 2023Q1

REPORT INFORMATION
  Report Type: Report from Study
  Country: US (occurrence: US)
  Receive Date: 20221008
  Receipt Date: 20230111
  Transmission Date: 20230417
  Serious: Yes (Hospitalization, Other)
  Sender: FDA-Public Use
  Company Number: US-NOVARTISPH-NVSC2022US225296

PATIENT
  Sex: Female

DRUGS (23)
  1. ENTRESTO [Suspect]
     Active Substance: SACUBITRIL\VALSARTAN
     Indication: Product used for unknown indication
     Dosage: 1 DOSAGE FORM, BID (24/26 MG)
     Route: 048
     Dates: start: 202209
  2. ENTRESTO [Suspect]
     Active Substance: SACUBITRIL\VALSARTAN
     Dosage: UNK
     Route: 048
     Dates: start: 20220915
  3. ISOSORBIDE [Concomitant]
     Active Substance: ISOSORBIDE
     Indication: Product used for unknown indication
     Dosage: UNK
     Route: 065
  4. MONTELUKAST [Concomitant]
     Active Substance: MONTELUKAST SODIUM
     Indication: Product used for unknown indication
     Dosage: 1 DOSAGE FORM, QD (PRESCRIBED DATE: 10 OCT 2022, DATE RUNS OUT: 1 JUL 2100)
     Route: 048
  5. ISOSORBIDE MONONITRATE [Concomitant]
     Active Substance: ISOSORBIDE MONONITRATE
     Indication: Product used for unknown indication
     Dosage: 1 DOSAGE FORM, QD  (ER TABLET, PRESCRIBED DATE: 10 OCT 2022, DATE RUNS OUT: 1 JUL 2100)
     Route: 048
  6. FAMOTIDINE [Concomitant]
     Active Substance: FAMOTIDINE
     Indication: Product used for unknown indication
     Dosage: 1 DOSAGE FORM, BID (PRESCRIBED DATE: 10 OCT 2022, DATE RUNS OUT: 1 JUL 2100)
     Route: 048
  7. PREDNISONE [Concomitant]
     Active Substance: PREDNISONE
     Indication: Product used for unknown indication
     Dosage: 1 DOSAGE FORM, TID (PRESCRIBED DATE: 10 OCT 2022, DATE RUNS OUT: 1 JUL 2100)
     Route: 048
  8. DILTIAZEM [Concomitant]
     Active Substance: DILTIAZEM
     Indication: Product used for unknown indication
     Dosage: 0.5 DOSAGE FORM (PRESCRIBED DATE: 10 OCT 2022, DATE RUNS OUT: 1 JUL 2100)
     Route: 048
  9. LASIX [Concomitant]
     Active Substance: FUROSEMIDE
     Indication: Product used for unknown indication
     Dosage: 1 DOSAGE FORM, QD (PRESCRIBED DATE: 10 OCT 2022, DATE RUNS OUT: 1 JUL 2100)
     Route: 048
  10. HYDROCODONE [Concomitant]
     Active Substance: HYDROCODONE
     Indication: Product used for unknown indication
     Dosage: 1 DOSAGE FORM, TID (PRESCRIBED DATE: 10 OCT 2022, DATE RUNS OUT: 1 JUL 2100)
     Route: 048
  11. ACETAMINOPHEN [Concomitant]
     Active Substance: ACETAMINOPHEN
     Indication: Product used for unknown indication
     Dosage: 1 DOSAGE FORM, TID (PRESCRIBED DATE: 10 OCT 2022, DATE RUNS OUT: 1 JUL 2100)
     Route: 048
  12. NITROGLYCERIN [Concomitant]
     Active Substance: NITROGLYCERIN
     Indication: Product used for unknown indication
     Dosage: 1 DOSAGE FORM, PRN (DATE PRESCRIBED: 29 AUG 2022, DATE RUNS OUT: 25 FEB 2030)
     Route: 065
  13. MAGNESIUM CHLORIDE [Concomitant]
     Active Substance: MAGNESIUM CHLORIDE
     Indication: Product used for unknown indication
     Dosage: 1 DOSAGE FORM, QD (DATE PRESCRIBED: 29 AUG 2022, DATE RUNS OUT: 25 FEB 2030)
     Route: 048
  14. INSULIN NOS [Concomitant]
     Active Substance: INSULIN NOS
     Indication: Product used for unknown indication
     Dosage: UNK, BID (LANTUS SOLOSATR U-100,  (DATE PRESCRIBED: 28 OCT 2021, DATE RUNS OUT: 22 FEB 2053)
     Route: 058
  15. PROAIR HFA [Concomitant]
     Active Substance: ALBUTEROL SULFATE
     Indication: Product used for unknown indication
     Dosage: UNK, PRN (90 MCG)  (DATE PRESCRIBED: 27 AUG 2020, DATE RUNS OUT: 23 FEB 2101)
     Route: 065
  16. NORCO [Concomitant]
     Active Substance: ACETAMINOPHEN\HYDROCODONE BITARTRATE
     Indication: Product used for unknown indication
     Dosage: 1 DOSAGE FORM, QID (325 MG) (DATE PRESCRIBED: 08 NOV 2018, DATE RUNS OUT: 05 MAR 2050)
     Route: 048
  17. BUPROPION [Concomitant]
     Active Substance: BUPROPION
     Indication: Product used for unknown indication
     Dosage: 1 DOSAGE FORM (DATE PRESCRIBED: 08 NOV 2018, DATE RUNS OUT: 05 MAR 2050)
     Route: 048
  18. GABAPENTIN [Concomitant]
     Active Substance: GABAPENTIN
     Indication: Product used for unknown indication
     Dosage: 1 DOSAGE FORM (6?) (DATE PRESCRIBED: 08 NOV 2018, DATE RUNS OUT: 05 MAR 2050)
     Route: 048
  19. ABILIFY [Concomitant]
     Active Substance: ARIPIPRAZOLE
     Indication: Product used for unknown indication
     Dosage: 1 DOSAGE FORM (DATE PRESCRIBED: 08 NOV 2018, DATE RUNS OUT: 05 MAR 2050)
     Route: 048
  20. ASPIRIN [Concomitant]
     Active Substance: ASPIRIN
     Indication: Product used for unknown indication
     Dosage: 2 DOSAGE FORM (DATE PRESCRIBED: 08 NOV 2018, DATE RUNS OUT: 05 MAR 2050)
     Route: 048
  21. AMBIEN [Concomitant]
     Active Substance: ZOLPIDEM TARTRATE
     Indication: Product used for unknown indication
     Dosage: 1 DOSAGE FORM, QD (DATE PRESCRIBED: 08 NOV 2018, DATE RUNS OUT: 05 MAR 2050)
     Route: 048
  22. ZOLOFT [Concomitant]
     Active Substance: SERTRALINE HYDROCHLORIDE
     Indication: Product used for unknown indication
     Dosage: UNK, QD (1.5 TABLET)
     Route: 048
  23. ATORVASTATIN [Concomitant]
     Active Substance: ATORVASTATIN
     Indication: Product used for unknown indication
     Dosage: 1 DOSAGE FORM, QD (DATE PRESCRIBED: 08 NOV 2018, DATE RUNS OUT: 05 MAR 2050)
     Route: 048

REACTIONS (11)
  - Bronchitis bacterial [Unknown]
  - Type 2 diabetes mellitus [Unknown]
  - Dyspnoea [Not Recovered/Not Resolved]
  - Memory impairment [Unknown]
  - Weight decreased [Unknown]
  - Tachycardia [Not Recovered/Not Resolved]
  - Obesity [Unknown]
  - Hyperlipidaemia [Unknown]
  - Blood glucose decreased [Unknown]
  - Bronchitis [Unknown]
  - Cough [Unknown]
